FAERS Safety Report 22601910 (Version 1)
Quarter: 2023Q2

REPORT INFORMATION
  Report Type: Spontaneous
  Country: US (occurrence: US)
  Receive Date: 20230614
  Receipt Date: 20230614
  Transmission Date: 20230721
  Serious: No
  Sender: FDA-Public Use
  Company Number: ENDG22-06331

PATIENT
  Age: 74 Year
  Sex: Female

DRUGS (1)
  1. BOSENTAN [Suspect]
     Active Substance: BOSENTAN
     Indication: Pulmonary arterial hypertension
     Dosage: 62.5 MG, BID (THREE DOSES)
     Route: 048
     Dates: start: 202210

REACTIONS (5)
  - Influenza like illness [Unknown]
  - Vomiting [Unknown]
  - Flatulence [Unknown]
  - Back pain [Unknown]
  - Chest pain [Unknown]

NARRATIVE: CASE EVENT DATE: 20221011
